FAERS Safety Report 23320313 (Version 1)
Quarter: 2023Q4

REPORT INFORMATION
  Report Type: Spontaneous
  Country: US (occurrence: None)
  Receive Date: 20231219
  Receipt Date: 20231219
  Transmission Date: 20240110
  Serious: Yes (Hospitalization)
  Sender: FDA-Public Use
  Company Number: None

PATIENT
  Age: 73 Year
  Sex: Female

DRUGS (1)
  1. LENALIDOMIDE [Suspect]
     Active Substance: LENALIDOMIDE
     Indication: Plasma cell myeloma
     Dosage: 25MG QD ORAL?
     Route: 048
     Dates: start: 20231013, end: 20231108

REACTIONS (3)
  - Acute respiratory failure [None]
  - Acute left ventricular failure [None]
  - Asthma-chronic obstructive pulmonary disease overlap syndrome [None]

NARRATIVE: CASE EVENT DATE: 20231219
